FAERS Safety Report 10649630 (Version 2)
Quarter: 2014Q4

REPORT INFORMATION
  Report Type: Spontaneous
  Country: DK (occurrence: JP)
  Receive Date: 20141212
  Receipt Date: 20141224
  Transmission Date: 20150529
  Serious: Yes (Other)
  Sender: FDA-Public Use
  Company Number: JP-FRI-1000073009

PATIENT
  Age: 77 Year
  Sex: Male

DRUGS (10)
  1. BROTIZOLAM [Concomitant]
     Active Substance: BROTIZOLAM
     Dosage: 0.125 MG
     Route: 048
     Dates: start: 20140403
  2. ZOLPIDEM TARTRATE. [Concomitant]
     Active Substance: ZOLPIDEM TARTRATE
     Indication: ANXIETY DISORDER
     Dosage: 5 MG
     Route: 048
     Dates: start: 2013, end: 20140401
  3. HALFDIGOXIN [Concomitant]
     Active Substance: DIGOXIN
     Indication: PRODUCT USED FOR UNKNOWN INDICATION
     Dosage: 0.125 MG
     Route: 048
  4. BENIDIPINE [Concomitant]
     Active Substance: BENIDIPINE
     Indication: PRODUCT USED FOR UNKNOWN INDICATION
     Dosage: 4 MG
     Route: 048
  5. ARGAMATE [Concomitant]
     Active Substance: POLYSTYRENE
     Indication: PRODUCT USED FOR UNKNOWN INDICATION
     Dosage: 75 MG
     Route: 048
  6. BAYASPIRIN [Concomitant]
     Active Substance: ASPIRIN
     Indication: PRODUCT USED FOR UNKNOWN INDICATION
     Dosage: 100 MG
     Route: 048
  7. ESCITALOPRAM [Suspect]
     Active Substance: ESCITALOPRAM OXALATE
     Indication: DEPRESSION
     Dosage: 10 MG
     Route: 048
     Dates: start: 20140331, end: 20140401
  8. BROTIZOLAM [Concomitant]
     Active Substance: BROTIZOLAM
     Indication: ANXIETY DISORDER
     Dosage: 0.125 MG
     Route: 048
     Dates: start: 20140402, end: 20140403
  9. ALLOPURINOL. [Concomitant]
     Active Substance: ALLOPURINOL
     Indication: PRODUCT USED FOR UNKNOWN INDICATION
     Dosage: 100 MG
     Route: 048
  10. RIZE [Concomitant]
     Active Substance: CLOTIAZEPAM
     Indication: ANXIETY DISORDER
     Dosage: 10 MG
     Route: 048
     Dates: start: 2013

REACTIONS (1)
  - Activation syndrome [Recovered/Resolved]

NARRATIVE: CASE EVENT DATE: 20140401
